FAERS Safety Report 5609149-9 (Version None)
Quarter: 2008Q1

REPORT INFORMATION
  Report Type: 
  Country: None (occurrence: None)
  Receive Date: 20080130
  Receipt Date: 20080130
  Transmission Date: 20080703
  Serious: Yes (Other)
  Sender: FDA-Public Use
  Company Number: None

PATIENT
  Age: 52 Year
  Sex: Male
  Weight: 123.832 kg

DRUGS (3)
  1. TC-99M  SESTAMIBI [Suspect]
     Indication: CHEST PAIN
     Dosage: 10.55 MCI  IV; 33.0 MCI IV
     Route: 042
  2. TC-99M  SESTAMIBI [Suspect]
     Indication: PREOPERATIVE CARE
     Dosage: 10.55 MCI  IV; 33.0 MCI IV
     Route: 042
  3. TC-99M SESTAMIBI [Suspect]

REACTIONS (5)
  - CHEST PAIN [None]
  - INFLUENZA LIKE ILLNESS [None]
  - MUSCLE SPASMS [None]
  - POST PROCEDURAL COMPLICATION [None]
  - VOMITING [None]
